FAERS Safety Report 19068871 (Version 1)
Quarter: 2021Q1

REPORT INFORMATION
  Report Type: Spontaneous
  Country: US (occurrence: US)
  Receive Date: 20210329
  Receipt Date: 20210329
  Transmission Date: 20210420
  Serious: Yes (Hospitalization)
  Sender: FDA-Public Use
  Company Number: None

PATIENT
  Age: 68 Year
  Sex: Male
  Weight: 114.8 kg

DRUGS (1)
  1. BAMLANIVIMAB. [Suspect]
     Active Substance: BAMLANIVIMAB
     Indication: COVID-19
     Dosage: ?          OTHER FREQUENCY:ONCE;?
     Route: 042
     Dates: start: 20210318, end: 20210318

REACTIONS (8)
  - Tremor [None]
  - Confusional state [None]
  - Magnetic resonance imaging abnormal [None]
  - Dehydration [None]
  - Hyperglycaemia [None]
  - Fall [None]
  - Fatigue [None]
  - Skin abrasion [None]

NARRATIVE: CASE EVENT DATE: 20210319
